FAERS Safety Report 7055699-0 (Version None)
Quarter: 2010Q4

REPORT INFORMATION
  Report Type: 
  Country: None (occurrence: None)
  Receive Date: 20101021
  Receipt Date: 20101013
  Transmission Date: 20110411
  Serious: Yes (Hospitalization)
  Sender: FDA-Public Use
  Company Number: US-ROCHE-699572

PATIENT
  Sex: Male
  Weight: 74.3 kg

DRUGS (30)
  1. TOCILIZUMAB [Suspect]
     Indication: RHEUMATOID ARTHRITIS
     Dosage: FORM: INFUSION, DATE OF LAST DOSE PRIOR TO SAE: 04 FEBRUARY 2010.
     Route: 042
     Dates: start: 20050921, end: 20100205
  2. TOCILIZUMAB [Suspect]
     Route: 042
     Dates: start: 20100601
  3. TOCILIZUMAB [Suspect]
     Dosage: ENROLLED IN STUDY WA18062 IN PAST, FORM: INFUSION
     Route: 042
  4. METHOTREXATE [Concomitant]
     Dosage: AS MUCH NEEDED.
     Route: 048
     Dates: start: 20050727
  5. METHOTREXATE [Concomitant]
     Route: 048
     Dates: start: 20080109, end: 20100223
  6. PREDNISONE [Concomitant]
     Route: 048
     Dates: start: 20001102, end: 20100223
  7. PREDNISONE [Concomitant]
     Route: 048
     Dates: start: 20100224, end: 20100308
  8. PREDNISONE [Concomitant]
     Route: 048
     Dates: start: 20100314, end: 20100316
  9. PREDNISONE [Concomitant]
     Route: 048
     Dates: start: 20100317, end: 20100319
  10. PREDNISONE [Concomitant]
     Route: 048
     Dates: start: 20100320, end: 20100322
  11. PREDNISONE [Concomitant]
     Route: 048
     Dates: start: 20100323, end: 20100325
  12. PREDNISONE [Concomitant]
     Dosage: FREQUENCY: DAILY
     Route: 048
     Dates: start: 20100326
  13. FOLIC ACID [Concomitant]
     Dates: start: 20050726
  14. PLAVIX [Concomitant]
     Dates: start: 20031022
  15. FOSAMAX [Concomitant]
     Dosage: TOTAL DAILY DOSE: 70 MG PER WEEK
     Dates: start: 20030731, end: 20100223
  16. HYDROCHLOROTHIAZIDE [Concomitant]
     Dates: start: 20031216
  17. TOPROL-XL [Concomitant]
     Dates: start: 20031022
  18. ISOSORBIDE MONONITRATE [Concomitant]
     Dates: start: 20031119
  19. CALCIUM/VITAMIN D [Concomitant]
     Dosage: 600MG/200 IU
     Dates: start: 20040422
  20. LEVOXYL [Concomitant]
     Dates: start: 20051123
  21. LOVASTATIN [Concomitant]
     Dates: start: 20060210
  22. OMEPRAZOLE [Concomitant]
     Dates: start: 20060616
  23. ASPIRIN [Concomitant]
     Dates: start: 20060819, end: 20100309
  24. ASPIRIN [Concomitant]
     Dates: start: 20100408
  25. METFORMIN [Concomitant]
     Dosage: DRUG NAME REPORTED AS METFORMIN HC.
     Dates: start: 20070423
  26. ALBUTEROL [Concomitant]
     Dates: start: 20030920
  27. SIMVASTATIN [Concomitant]
     Dates: start: 20080129
  28. K-DUR [Concomitant]
     Dates: start: 20090528
  29. GLIPIZIDE [Concomitant]
     Dates: start: 20070114, end: 20100331
  30. SWINE FLU VACCINE [Concomitant]
     Dosage: DRUG REPORTED AS: H1N1 INFLUENZA VACCINE
     Dates: start: 20100121, end: 20100121

REACTIONS (3)
  - ILEUS PARALYTIC [None]
  - PANCREATIC NEOPLASM [None]
  - PROTEUS INFECTION [None]
